FAERS Safety Report 8952560 (Version 1)
Quarter: 2012Q4

REPORT INFORMATION
  Report Type: 
  Country: US (occurrence: US)
  Receive Date: 20121205
  Receipt Date: 20121205
  Transmission Date: 20130627
  Serious: No
  Sender: FDA-Public Use
  Company Number: US-B.I. PHARMACEUTICALS,INC./RIDGEFIELD-2012-BI-01662BP

PATIENT
  Age: 91 Year
  Sex: Female
  Weight: 61 kg

DRUGS (3)
  1. PRADAXA [Suspect]
     Indication: ATRIAL FIBRILLATION
     Dosage: 300 mg
     Route: 048
  2. COZAAR [Concomitant]
     Indication: HYPERTENSION
     Dosage: 25 mg
     Route: 048
  3. ATENOLOL [Concomitant]
     Dosage: 25 mg
     Route: 048

REACTIONS (2)
  - Halo vision [Not Recovered/Not Resolved]
  - Chromatopsia [Not Recovered/Not Resolved]
